FAERS Safety Report 24553538 (Version 1)
Quarter: 2024Q4

REPORT INFORMATION
  Report Type: Report from Study
  Country: GB (occurrence: GB)
  Receive Date: 20241028
  Receipt Date: 20241028
  Transmission Date: 20250114
  Serious: No
  Sender: ROCHE
  Company Number: GB-IPSEN Group, Research and Development-2023-17962

PATIENT
  Sex: Female

DRUGS (5)
  1. NUTROPIN AQ [Suspect]
     Active Substance: SOMATROPIN
     Indication: Growth hormone deficiency
     Route: 058
     Dates: start: 201706
  2. THYROXINE [Concomitant]
     Active Substance: LEVOTHYROXINE
     Dosage: 125 MG ONCE A DAY
  3. DESMOPRESSIN [Concomitant]
     Active Substance: DESMOPRESSIN
     Dosage: 0.1 MG TWICE A DAY
  4. SYMBICORT [Concomitant]
     Active Substance: BUDESONIDE\FORMOTEROL FUMARATE DIHYDRATE
     Dosage: INHALER
  5. SERTRALINE [Concomitant]
     Active Substance: SERTRALINE HYDROCHLORIDE
     Dosage: 20 MG ONCE A DAY

REACTIONS (7)
  - Rash [Unknown]
  - Product dose omission issue [Unknown]
  - Fatigue [Unknown]
  - Lethargy [Unknown]
  - Weight increased [Unknown]
  - Insomnia [Unknown]
  - Panic attack [Unknown]
